FAERS Safety Report 6167636-1 (Version None)
Quarter: 2009Q2

REPORT INFORMATION
  Report Type: 
  Country: None (occurrence: None)
  Receive Date: 20090424
  Receipt Date: 20090113
  Transmission Date: 20091009
  Serious: Yes (Other)
  Sender: FDA-Public Use
  Company Number: PHHY2009CA01304

PATIENT

DRUGS (1)
  1. DIOVAN T30230++HY [Suspect]
     Dosage: 160 MG
     Route: 048

REACTIONS (1)
  - GOUT [None]
